FAERS Safety Report 9780004 (Version 2)
Quarter: 2014Q2

REPORT INFORMATION
  Report Type: Spontaneous
  Country: US (occurrence: US)
  Receive Date: 20131223
  Receipt Date: 20140407
  Transmission Date: 20141212
  Serious: Yes (Other)
  Sender: FDA-Public Use
  Company Number: US-GLAXOSMITHKLINE-A1054510A

PATIENT
  Age: 76 Year
  Sex: Female

DRUGS (11)
  1. FLONASE [Suspect]
     Indication: PRODUCT USED FOR UNKNOWN INDICATION
     Route: 045
  2. PREDNISONE [Suspect]
     Indication: PRODUCT USED FOR UNKNOWN INDICATION
     Route: 065
  3. PULMICORT [Concomitant]
  4. ALBUTEROL [Concomitant]
  5. VITAMIN C [Concomitant]
  6. CHOLECALCIFEROL [Concomitant]
  7. PREVACID [Concomitant]
  8. MAGNESIUM OXIDE [Concomitant]
  9. NITROGLYCERINE [Concomitant]
  10. FISH OIL [Concomitant]
  11. SINGULAIR [Concomitant]

REACTIONS (2)
  - Cytomegalovirus infection [Not Recovered/Not Resolved]
  - Upper-airway cough syndrome [Not Recovered/Not Resolved]
